FAERS Safety Report 8813182 (Version 1)
Quarter: 2012Q4

REPORT INFORMATION
  Report Type: 
  Country: US (occurrence: US)
  Receive Date: 20120927
  Receipt Date: 20120927
  Transmission Date: 20130627
  Serious: No
  Sender: FDA-Public Use
  Company Number: US-009507513-1209USA009666

PATIENT
  Age: 33 Year
  Sex: Female

DRUGS (4)
  1. GANIRELIX ACETATE INJECTION [Suspect]
     Indication: PREVENTION OF PREMATURE OVULATION
     Dosage: 250 Microgram, qd
     Route: 058
     Dates: start: 20120914, end: 20120917
  2. FOLLISTIM [Concomitant]
  3. MENOPUR [Concomitant]
  4. VITAMINS (UNSPECIFIED) [Concomitant]

REACTIONS (1)
  - Drug ineffective [Not Recovered/Not Resolved]
